FAERS Safety Report 24120379 (Version 1)
Quarter: 2024Q3

REPORT INFORMATION
  Report Type: Spontaneous
  Country: DE (occurrence: DE)
  Receive Date: 20240722
  Receipt Date: 20240722
  Transmission Date: 20241017
  Serious: Yes (Life-Threatening, Hospitalization, Other)
  Sender: DR REDDYS
  Company Number: DE-GERMAN-LIT/DEU/24/0010378

PATIENT
  Age: 66 Year
  Sex: Female

DRUGS (7)
  1. MORPHINE [Suspect]
     Active Substance: MORPHINE
     Indication: Loss of consciousness
  2. MIDAZOLAM [Concomitant]
     Active Substance: MIDAZOLAM
     Indication: Loss of consciousness
  3. ETOMIDATE [Concomitant]
     Active Substance: ETOMIDATE
     Indication: Loss of consciousness
  4. RANITIDINE [Concomitant]
     Active Substance: RANITIDINE
     Indication: Uterine cancer
     Route: 048
  5. CLEMASTINE FUMARATE [Concomitant]
     Active Substance: CLEMASTINE FUMARATE
     Indication: Uterine cancer
     Route: 042
  6. EPINEPHRINE [Concomitant]
     Active Substance: EPINEPHRINE
     Indication: Loss of consciousness
     Dosage: APPLIED DIRECTLY TO THE PORT CATHETER.
  7. PACLITAXEL [Concomitant]
     Active Substance: PACLITAXEL
     Indication: Uterine cancer
     Dosage: DRIP OF 266 MG
     Route: 041

REACTIONS (1)
  - Drug ineffective for unapproved indication [Unknown]
